FAERS Safety Report 9303624 (Version 3)
Quarter: 2013Q2

REPORT INFORMATION
  Report Type: Spontaneous
  Country: US (occurrence: US)
  Receive Date: 20130522
  Receipt Date: 20130618
  Transmission Date: 20140414
  Serious: Yes (Hospitalization)
  Sender: FDA-Public Use
  Company Number: US-PFIZER INC-2013154408

PATIENT
  Age: 82 Year
  Sex: Female
  Weight: 57.14 kg

DRUGS (6)
  1. LIPITOR [Suspect]
     Indication: BLOOD CHOLESTEROL ABNORMAL
     Dosage: 10 MG, DAILY
  2. SYNTHROID [Concomitant]
     Indication: THYROID DISORDER
     Dosage: 0.025 MG, DAILY
  3. LOSARTAN [Concomitant]
     Indication: BLOOD PRESSURE ABNORMAL
     Dosage: UNK
  4. FISH OIL [Concomitant]
     Dosage: UNK, AS NEEDED
  5. CENTRUM SILVER [Concomitant]
     Indication: ROUTINE HEALTH MAINTENANCE
     Dosage: UNK
  6. FOLIC ACID [Concomitant]
     Dosage: UNK

REACTIONS (3)
  - Arthropathy [Unknown]
  - Weight decreased [Unknown]
  - Expired drug administered [Unknown]
